FAERS Safety Report 9674848 (Version 2)
Quarter: 2013Q4

REPORT INFORMATION
  Report Type: Report from Study
  Country: DE (occurrence: DE)
  Receive Date: 20131107
  Receipt Date: 20131119
  Transmission Date: 20140711
  Serious: Yes (Congenital Anomaly)
  Sender: FDA-Public Use
  Company Number: PHHY2013DE123615

PATIENT
  Age: 1 Day
  Sex: Female

DRUGS (4)
  1. LEPONEX [Suspect]
     Indication: SCHIZOPHRENIA
     Dosage: 200 MG, QD
     Route: 064
     Dates: start: 20080408, end: 20081210
  2. ABILIFY [Suspect]
     Indication: SCHIZOPHRENIA
     Dosage: 10 MG, QD
     Route: 064
     Dates: start: 20080408, end: 20081210
  3. EUTHYROX [Concomitant]
     Indication: HYPOTHYROIDISM
     Dosage: 50 UG, QD
     Route: 064
     Dates: start: 20080408, end: 20081209
  4. FOLIO [Concomitant]
     Indication: PROPHYLAXIS OF NEURAL TUBE DEFECT
     Dosage: 0.4 MG, QD
     Route: 064
     Dates: start: 20080408, end: 20081210

REACTIONS (1)
  - Ventricular septal defect [Unknown]
